FAERS Safety Report 5267908-9 (Version None)
Quarter: 2007Q1

REPORT INFORMATION
  Report Type: 
  Country: None (occurrence: None)
  Receive Date: 20061213
  Receipt Date: 20031006
  Transmission Date: 20070707
  Serious: No
  Sender: FDA-Public Use
  Company Number: 2003UW10811

PATIENT
  Age: 72 Year
  Sex: Male
  Weight: 79.3795 kg

DRUGS (12)
  1. IRESSA [Suspect]
     Indication: NON-SMALL CELL LUNG CANCER
     Dosage: 250 MG DAILY PO
     Route: 048
     Dates: start: 20030710
  2. COREG [Concomitant]
  3. ALBUTEROL [Concomitant]
  4. ADVAIR DISKUS 100/50 [Concomitant]
  5. IRON [Concomitant]
  6. LASIX [Concomitant]
  7. OXYCONTIN [Concomitant]
  8. ZOLOFT [Concomitant]
  9. XANAX [Concomitant]
  10. POTASSIUM ACETATE [Concomitant]
  11. VITAMIN CAP [Concomitant]
  12. COMPAZINE [Concomitant]

REACTIONS (4)
  - DISEASE PROGRESSION [None]
  - INCREASED UPPER AIRWAY SECRETION [None]
  - SKIN DISCOLOURATION [None]
  - THROMBOSIS [None]
